FAERS Safety Report 6336585-8 (Version None)
Quarter: 2009Q3

REPORT INFORMATION
  Report Type: 
  Country: None (occurrence: None)
  Receive Date: 20090831
  Receipt Date: 20090831
  Transmission Date: 20100115
  Serious: Yes (Hospitalization)
  Sender: FDA-Public Use
  Company Number: None

PATIENT
  Sex: Female

DRUGS (1)
  1. FEMARA [Suspect]
     Indication: BREAST CANCER
     Dosage: 2.5MG ONCE DAILY BY MOUTH
     Route: 048

REACTIONS (2)
  - INTESTINAL PROLAPSE [None]
  - WOUND DEHISCENCE [None]
